FAERS Safety Report 19470880 (Version 3)
Quarter: 2021Q3

REPORT INFORMATION
  Report Type: Report from Study
  Country: None (occurrence: US)
  Receive Date: 20210629
  Receipt Date: 20210720
  Transmission Date: 20211014
  Serious: Yes (Other)
  Sender: FDA-Public Use
  Company Number: US-ABBVIE-21K-163-3969001-00

PATIENT
  Age: 32 Year
  Sex: Female
  Weight: 83.99 kg

DRUGS (1)
  1. HUMIRA [Suspect]
     Active Substance: ADALIMUMAB
     Indication: HIDRADENITIS
     Dosage: CF
     Route: 058
     Dates: start: 202103

REACTIONS (4)
  - Dehydration [Unknown]
  - Pancreatic duct dilatation [Unknown]
  - Pancreatitis chronic [Not Recovered/Not Resolved]
  - Pancreatic enlargement [Unknown]

NARRATIVE: CASE EVENT DATE: 202106
